FAERS Safety Report 6701762-0 (Version None)
Quarter: 2010Q2

REPORT INFORMATION
  Report Type: 
  Country: None (occurrence: None)
  Receive Date: 20100429
  Receipt Date: 20100423
  Transmission Date: 20101027
  Serious: Yes (Death, Hospitalization)
  Sender: FDA-Public Use
  Company Number: PHHO2007US06181

PATIENT
  Sex: Male
  Weight: 70 kg

DRUGS (1)
  1. CERTICAN [Suspect]
     Indication: HEART TRANSPLANT
     Dosage: 1.5 MG, BID
     Route: 048
     Dates: start: 20070329

REACTIONS (10)
  - BRONCHOPULMONARY ASPERGILLOSIS [None]
  - DYSPNOEA [None]
  - EMBOLISM VENOUS [None]
  - LUNG CONSOLIDATION [None]
  - LUNG INFECTION PSEUDOMONAL [None]
  - LUNG INFILTRATION [None]
  - PAIN [None]
  - PULMONARY EMBOLISM [None]
  - PYREXIA [None]
  - VASCULAR PSEUDOANEURYSM [None]
